FAERS Safety Report 13019660 (Version 3)
Quarter: 2017Q2

REPORT INFORMATION
  Report Type: Spontaneous
  Country: US (occurrence: US)
  Receive Date: 20161212
  Receipt Date: 20170510
  Transmission Date: 20170830
  Serious: Yes (Other)
  Sender: FDA-Public Use
  Company Number: US-ROCHE-1801687

PATIENT
  Age: 63 Year
  Sex: Female
  Weight: 102.15 kg

DRUGS (11)
  1. FOLIC ACID. [Concomitant]
     Active Substance: FOLIC ACID
  2. ATENOLOL. [Concomitant]
     Active Substance: ATENOLOL
  3. ACTEMRA [Suspect]
     Active Substance: TOCILIZUMAB
     Indication: RHEUMATOID ARTHRITIS
     Route: 058
     Dates: start: 20160510
  4. LOSARTAN. [Concomitant]
     Active Substance: LOSARTAN
  5. ACTEMRA [Suspect]
     Active Substance: TOCILIZUMAB
     Dosage: INJ 162MG/0.9ML PFS
     Route: 058
     Dates: start: 20161027
  6. ACTEMRA [Suspect]
     Active Substance: TOCILIZUMAB
     Dosage: 162MG/0.9ML
     Route: 058
     Dates: start: 20170413
  7. IBUPROFEN. [Concomitant]
     Active Substance: IBUPROFEN
  8. ATORVASTATIN [Concomitant]
     Active Substance: ATORVASTATIN
  9. PREDNISONE. [Concomitant]
     Active Substance: PREDNISONE
  10. HCTZ [Concomitant]
     Active Substance: HYDROCHLOROTHIAZIDE
  11. METFORMIN [Concomitant]
     Active Substance: METFORMIN HYDROCHLORIDE
     Indication: TYPE 2 DIABETES MELLITUS
     Route: 048

REACTIONS (7)
  - Chills [Unknown]
  - Pain in extremity [Unknown]
  - Neuropathy peripheral [Recovering/Resolving]
  - Hypoaesthesia [Recovering/Resolving]
  - Paraesthesia [Recovering/Resolving]
  - Viral upper respiratory tract infection [Unknown]
  - Urinary tract infection [Unknown]

NARRATIVE: CASE EVENT DATE: 20170312
